FAERS Safety Report 12131768 (Version 1)
Quarter: 2016Q1

REPORT INFORMATION
  Report Type: Spontaneous
  Country: US (occurrence: US)
  Receive Date: 20160301
  Receipt Date: 20160301
  Transmission Date: 20160526
  Serious: No
  Sender: FDA-Public Use
  Company Number: US-JNJFOC-20160112464

PATIENT
  Age: 78 Year
  Sex: Female
  Weight: 54.89 kg

DRUGS (9)
  1. VITAMIN D [Concomitant]
     Active Substance: CHOLECALCIFEROL
     Dosage: 1200
     Route: 048
  2. MULTIVITAMINS [Concomitant]
     Active Substance: VITAMINS
     Route: 048
  3. ZEAXANTHIN [Concomitant]
     Active Substance: ZEAXANTHIN
     Indication: DRY EYE
     Route: 047
  4. CEVIMELINE. [Concomitant]
     Active Substance: CEVIMELINE
     Indication: DRY MOUTH
     Route: 048
     Dates: start: 201504, end: 201601
  5. EVISTA [Concomitant]
     Active Substance: RALOXIFENE HYDROCHLORIDE
     Indication: BONE DISORDER
     Route: 048
     Dates: start: 2011
  6. OASIS TEARS [Concomitant]
     Active Substance: GLYCERIN
     Indication: DRY EYE
     Route: 047
  7. PREMARIN [Concomitant]
     Active Substance: ESTROGENS, CONJUGATED
     Indication: VULVOVAGINAL DRYNESS
     Route: 065
     Dates: start: 2007
  8. CALCIUM [Concomitant]
     Active Substance: CALCIUM
     Route: 048
  9. LEVAQUIN [Suspect]
     Active Substance: LEVOFLOXACIN
     Indication: SINUSITIS
     Route: 048
     Dates: start: 20150312, end: 20150322

REACTIONS (5)
  - Decreased appetite [Not Recovered/Not Resolved]
  - Abnormal loss of weight [Not Recovered/Not Resolved]
  - Ageusia [Not Recovered/Not Resolved]
  - Herpes zoster [Recovered/Resolved]
  - Anosmia [Not Recovered/Not Resolved]

NARRATIVE: CASE EVENT DATE: 2015
